FAERS Safety Report 24293189 (Version 1)
Quarter: 2024Q3

REPORT INFORMATION
  Report Type: Spontaneous
  Country: US (occurrence: None)
  Receive Date: 20240906
  Receipt Date: 20240906
  Transmission Date: 20241016
  Serious: No
  Sender: DOMPE FARMACEUTICI
  Company Number: US-FARMAPROD-202308-202312-3609

PATIENT
  Age: 73 Year
  Sex: Female

DRUGS (13)
  1. OXERVATE [Suspect]
     Active Substance: CENEGERMIN-BKBJ
     Indication: Hypoaesthesia eye
     Route: 047
     Dates: start: 20231114
  2. OXERVATE [Suspect]
     Active Substance: CENEGERMIN-BKBJ
     Indication: Neurotrophic keratopathy
  3. GLUCOSAMINE-MSM [Concomitant]
     Dosage: 500-500 MG
  4. B-COMPLEX PLUS VITAMIN C [Concomitant]
  5. VITAMIN D2 [Concomitant]
     Active Substance: ERGOCALCIFEROL
  6. FLUTICASONE-SALMETEROL HFA [Concomitant]
  7. NUCALA [Concomitant]
     Active Substance: MEPOLIZUMAB
     Dosage: AUTO INJECTION
  8. GINKGO [Concomitant]
     Active Substance: GINKGO
  9. VYZULTA [Concomitant]
     Active Substance: LATANOPROSTENE BUNOD
  10. BRIMONIDINE TARTRATE [Concomitant]
     Active Substance: BRIMONIDINE TARTRATE
  11. COSOPT PF [Concomitant]
     Active Substance: DORZOLAMIDE HYDROCHLORIDE\TIMOLOL MALEATE
     Dosage: 2 %-0.5 %
  12. CALCIUM 500-VIT D3 [Concomitant]
  13. PROLIA [Concomitant]
     Active Substance: DENOSUMAB
     Dosage: SYRINGE

REACTIONS (2)
  - Muscle discomfort [Unknown]
  - Fatigue [Unknown]

NARRATIVE: CASE EVENT DATE: 20230101
